FAERS Safety Report 6414545-6 (Version None)
Quarter: 2009Q4

REPORT INFORMATION
  Report Type: 
  Country: None (occurrence: None)
  Receive Date: 20091021
  Receipt Date: 20091006
  Transmission Date: 20100525
  Serious: Yes (Death, Hospitalization)
  Sender: FDA-Public Use
  Company Number: 2009002632

PATIENT
  Age: 61 Year
  Sex: Male

DRUGS (13)
  1. ERLOTINIB HYDROCHLORIDE [Suspect]
     Indication: NON-SMALL CELL LUNG CANCER
     Dosage: (150 MG, QD), ORAL
     Route: 048
     Dates: start: 20090711, end: 20090722
  2. DOCETAXEL [Suspect]
     Indication: NON-SMALL CELL LUNG CANCER METASTATIC
     Dosage: (130 MG, Q3W), INTRAVENOUS
     Route: 042
     Dates: start: 20090708, end: 20090708
  3. GLIMEPIRIDE [Suspect]
     Indication: DIABETES MELLITUS
     Dosage: (4 MG) , ORAL
     Route: 048
     Dates: start: 20070101, end: 20090724
  4. LOGIMAX (MODILOC) [Concomitant]
  5. ATACAND HCT [Suspect]
  6. LONARID (LONARID) [Concomitant]
  7. DEXAMETHASONE TAB [Concomitant]
  8. ONDANSETRON [Concomitant]
  9. PREDNISOLONE [Concomitant]
  10. FENISTIL (DIMETINDENE MALEATE) [Concomitant]
  11. AUGMENTIN '125' [Concomitant]
  12. ELOCON [Concomitant]
  13. METFORMIN HCL [Concomitant]

REACTIONS (13)
  - BLOOD GLUCOSE DECREASED [None]
  - BONE PAIN [None]
  - CULTURE URINE POSITIVE [None]
  - CYSTITIS [None]
  - DECREASED APPETITE [None]
  - FATIGUE [None]
  - HYPOALBUMINAEMIA [None]
  - HYPONATRAEMIA [None]
  - LEUKOPENIA [None]
  - PLEURAL EFFUSION [None]
  - SEPTIC SHOCK [None]
  - STAPHYLOCOCCAL INFECTION [None]
  - WEIGHT DECREASED [None]
